FAERS Safety Report 9321422 (Version 1)
Quarter: 2013Q2

REPORT INFORMATION
  Report Type: Spontaneous
  Country: FR (occurrence: FR)
  Receive Date: 20130531
  Receipt Date: 20130531
  Transmission Date: 20140414
  Serious: Yes (Hospitalization)
  Sender: FDA-Public Use
  Company Number: FR-SANOFI-AVENTIS-2013SA052976

PATIENT
  Sex: Male

DRUGS (3)
  1. LANTUS [Suspect]
     Indication: DIABETES MELLITUS
     Route: 058
  2. NOVORAPID [Suspect]
     Indication: DIABETES MELLITUS
     Route: 058
  3. BGSTAR METER [Concomitant]
     Indication: DEVICE THERAPY

REACTIONS (1)
  - Coma [Recovered/Resolved]
